FAERS Safety Report 17906904 (Version 1)
Quarter: 2020Q2

REPORT INFORMATION
  Report Type: Spontaneous
  Country: US (occurrence: US)
  Receive Date: 20200617
  Receipt Date: 20200617
  Transmission Date: 20200714
  Serious: No
  Sender: FDA-Public Use
  Company Number: US-PFIZER INC-2020233488

PATIENT
  Age: 86 Year
  Sex: Female
  Weight: 58.97 kg

DRUGS (2)
  1. ADVIL [Suspect]
     Active Substance: IBUPROFEN
     Indication: PAIN
     Dosage: UNK
  2. IBUPROFEN. [Suspect]
     Active Substance: IBUPROFEN
     Indication: PAIN
     Dosage: UNK, 200 MG (TAKES TWO TO FOUR TABLETS BUT NOT ALL OF THE TIMES

REACTIONS (2)
  - Reaction to excipient [Unknown]
  - Dyspepsia [Unknown]
